FAERS Safety Report 18078527 (Version 1)
Quarter: 2020Q3

REPORT INFORMATION
  Report Type: Spontaneous
  Country: CN (occurrence: CN)
  Receive Date: 20200727
  Receipt Date: 20200727
  Transmission Date: 20201103
  Serious: Yes (Other)
  Sender: FDA-Public Use
  Company Number: CN-BAXTER-2020BAX015005

PATIENT
  Age: 57 Year
  Sex: Female
  Weight: 65 kg

DRUGS (8)
  1. 5% GLUCOSE  INJECTION [Suspect]
     Active Substance: DEXTROSE
     Dosage: CYCLE?5, DAY 2, PIRARUBICIN HYDROCHLORIDE 40 MG + 5% GLUCOSE 250 ML
     Route: 041
     Dates: start: 20200618, end: 20200618
  2. PIRARUBICIN HYDROCHLORIDE [Suspect]
     Active Substance: PIRARUBICIN HYDROCHLORIDE
     Dosage: CYCLE?5, DAY 1, PIRARUBICIN HYDROCHLORIDE 50 MG + 5% GLUCOSE 250 ML
     Route: 041
     Dates: start: 20200617, end: 20200617
  3. 5% GLUCOSE  INJECTION [Suspect]
     Active Substance: DEXTROSE
     Dosage: CYCLE?5, DAY 1, PIRARUBICIN HYDROCHLORIDE 50 MG + 5% GLUCOSE 250 ML
     Route: 041
     Dates: start: 20200617, end: 20200617
  4. 5% GLUCOSE  INJECTION [Suspect]
     Active Substance: DEXTROSE
     Indication: MEDICATION DILUTION
     Dosage: CYCLES 1 TO 4, PIRARUBICIN HYDROCHLORIDE + 5% GLUCOSE
     Route: 041
  5. PIRARUBICIN HYDROCHLORIDE [Suspect]
     Active Substance: PIRARUBICIN HYDROCHLORIDE
     Indication: BREAST CANCER
     Dosage: CYCLES 1 TO 4, PIRARUBICIN HYDROCHLORIDE + 5% GLUCOSE
     Route: 041
  6. ENDOXAN [Suspect]
     Active Substance: CYCLOPHOSPHAMIDE
     Indication: BREAST CANCER
     Dosage: CYCLES?1 TO 4
     Route: 041
  7. PIRARUBICIN HYDROCHLORIDE [Suspect]
     Active Substance: PIRARUBICIN HYDROCHLORIDE
     Dosage: CYCLE?5, DAY 2, PIRARUBICIN HYDROCHLORIDE 40 MG + 5% GLUCOSE 250 ML
     Route: 041
     Dates: start: 20200618, end: 20200618
  8. ENDOXAN [Suspect]
     Active Substance: CYCLOPHOSPHAMIDE
     Dosage: CYCLE?5, DAY 1?2
     Route: 041
     Dates: start: 20200617, end: 20200618

REACTIONS (2)
  - Myelosuppression [Recovered/Resolved]
  - Anaemia [Recovered/Resolved]

NARRATIVE: CASE EVENT DATE: 20200708
